FAERS Safety Report 14491755 (Version 1)
Quarter: 2018Q1

REPORT INFORMATION
  Report Type: Report from Study
  Country: CA (occurrence: CA)
  Receive Date: 20180206
  Receipt Date: 20180206
  Transmission Date: 20180509
  Serious: Yes (Other)
  Sender: FDA-Public Use
  Company Number: CA-REGENERON PHARMACEUTICALS, INC.-2018-12409

PATIENT

DRUGS (15)
  1. EYLEA [Suspect]
     Active Substance: AFLIBERCEPT
     Dosage: 50 ?L, Q1MON, RIGHT EYE
     Route: 031
     Dates: start: 20160720, end: 20160720
  2. EYLEA [Suspect]
     Active Substance: AFLIBERCEPT
     Dosage: 50 ?L, Q1MON, RIGHT EYE
     Route: 031
     Dates: start: 20160928, end: 20160928
  3. VITAMIN D [Concomitant]
     Active Substance: CHOLECALCIFEROL
     Indication: PRODUCT USED FOR UNKNOWN INDICATION
     Dosage: 1000 IU, UNK
     Dates: start: 2006
  4. EYLEA [Suspect]
     Active Substance: AFLIBERCEPT
     Dosage: 50 ?L, Q1MON, RIGHT EYE
     Route: 031
     Dates: start: 20160830, end: 20160830
  5. OXYBUTYNIN. [Concomitant]
     Active Substance: OXYBUTYNIN CHLORIDE
     Indication: PRODUCT USED FOR UNKNOWN INDICATION
     Dosage: 5 MG, UNK
     Dates: start: 2004
  6. EYLEA [Suspect]
     Active Substance: AFLIBERCEPT
     Dosage: 50 ?L, Q1MON, RIGHT EYE
     Route: 031
     Dates: start: 20161206, end: 20161206
  7. EYLEA [Suspect]
     Active Substance: AFLIBERCEPT
     Dosage: 50 ?L, Q1MON, RIGHT EYE
     Route: 031
     Dates: start: 20170118, end: 20170118
  8. ZYMAR [Concomitant]
     Active Substance: GATIFLOXACIN
     Indication: PRODUCT USED FOR UNKNOWN INDICATION
     Dosage: 4 GTT, UNK
     Route: 031
     Dates: start: 20160420
  9. TECTA [Concomitant]
     Active Substance: PANTOPRAZOLE MAGNESIUM
     Indication: PRODUCT USED FOR UNKNOWN INDICATION
     Dosage: 40 MG, UNK
     Dates: start: 2011
  10. EYLEA [Suspect]
     Active Substance: AFLIBERCEPT
     Indication: NEOVASCULAR AGE-RELATED MACULAR DEGENERATION
     Dosage: 50 ?L, Q1MON, RIGHT EYE
     Route: 031
     Dates: start: 20160315, end: 20160315
  11. EYLEA [Suspect]
     Active Substance: AFLIBERCEPT
     Dosage: 50 ?L, Q1MON, RIGHT EYE
     Route: 031
     Dates: start: 20160526, end: 20160526
  12. CHOLESTYRAMINE. [Concomitant]
     Active Substance: CHOLESTYRAMINE
     Indication: PRODUCT USED FOR UNKNOWN INDICATION
     Dosage: UNK
     Dates: start: 2011
  13. PREMARIN [Concomitant]
     Active Substance: ESTROGENS, CONJUGATED
     Indication: PRODUCT USED FOR UNKNOWN INDICATION
     Dosage: 0.625 MG, UNK
     Dates: start: 1996
  14. EYLEA [Suspect]
     Active Substance: AFLIBERCEPT
     Dosage: 50 ?L, Q1MON, RIGHT EYE
     Route: 031
     Dates: start: 20160420, end: 20160420
  15. MELOXICAM. [Concomitant]
     Active Substance: MELOXICAM
     Indication: PRODUCT USED FOR UNKNOWN INDICATION
     Dosage: 7.5 MG, UNK
     Dates: start: 1996

REACTIONS (1)
  - Malignant glaucoma [Recovering/Resolving]

NARRATIVE: CASE EVENT DATE: 20170119
